FAERS Safety Report 7418397-7 (Version None)
Quarter: 2011Q2

REPORT INFORMATION
  Report Type: 
  Country: None (occurrence: None)
  Receive Date: 20110415
  Receipt Date: 20110411
  Transmission Date: 20111010
  Serious: Yes (Other)
  Sender: FDA-Public Use
  Company Number: PL-BRISTOL-MYERS SQUIBB COMPANY-15664220

PATIENT
  Sex: Male

DRUGS (4)
  1. VALPROIC ACID [Suspect]
  2. LITHIUM [Suspect]
     Dosage: LITHIUM CARBONICUM
  3. OLANZAPINE [Suspect]
  4. ABILIFY [Suspect]
     Indication: BIPOLAR DISORDER

REACTIONS (1)
  - ANTIPSYCHOTIC DRUG LEVEL INCREASED [None]
